FAERS Safety Report 5349304-9 (Version None)
Quarter: 2007Q2

REPORT INFORMATION
  Report Type: 
  Country: None (occurrence: None)
  Receive Date: 20070607
  Receipt Date: 20070531
  Transmission Date: 20071010
  Serious: Yes (Death)
  Sender: FDA-Public Use
  Company Number: B0469934A

PATIENT
  Age: 86 Year
  Sex: Female

DRUGS (9)
  1. DEROXAT [Suspect]
     Indication: DRUG USE FOR UNKNOWN INDICATION
     Route: 048
  2. FONZYLANE [Suspect]
     Indication: ARTERITIS
     Dosage: 400MG SINGLE DOSE
     Route: 042
     Dates: start: 20070420, end: 20070420
  3. EQUANIL [Suspect]
     Route: 048
  4. LASIX [Suspect]
     Dosage: 20MG PER DAY
     Route: 048
  5. ATENOLOL [Suspect]
     Dosage: 50MG PER DAY
     Route: 048
  6. PERINDOPRIL ERBUMINE [Suspect]
     Dosage: 4MG PER DAY
     Route: 048
  7. ZOLPIDEM [Suspect]
  8. ELISOR [Suspect]
  9. SINTROM [Concomitant]
     Indication: DEEP VEIN THROMBOSIS
     Dates: end: 20070330

REACTIONS (1)
  - SUDDEN DEATH [None]
